FAERS Safety Report 16128024 (Version 1)
Quarter: 2019Q1

REPORT INFORMATION
  Report Type: Spontaneous
  Country: CN (occurrence: CN)
  Receive Date: 20190328
  Receipt Date: 20190328
  Transmission Date: 20190418
  Serious: Yes (Hospitalization)
  Sender: FDA-Public Use
  Company Number: CN-ROCHE-2287882

PATIENT
  Age: 42 Year
  Sex: Female

DRUGS (18)
  1. GANCICLOVIR. [Suspect]
     Active Substance: GANCICLOVIR
     Indication: ANTIVIRAL PROPHYLAXIS
     Dosage: INTRAVENOUS INJECTION
     Route: 042
     Dates: start: 2016, end: 2016
  2. TACROLIMUS. [Concomitant]
     Active Substance: TACROLIMUS
     Indication: IMMUNOSUPPRESSION
     Dosage: 2.5MG PER 12 HOURS
     Route: 065
     Dates: start: 2016
  3. SULFAMETHOXAZOLE [Concomitant]
     Active Substance: SULFAMETHOXAZOLE
     Dosage: 1.44, 8 TIMES/8H
     Route: 065
     Dates: start: 2016
  4. MYFORTIC [Concomitant]
     Active Substance: MYCOPHENOLATE SODIUM
     Route: 065
     Dates: start: 2016
  5. GANCICLOVIR. [Concomitant]
     Active Substance: GANCICLOVIR
     Indication: ANTIVIRAL TREATMENT
     Route: 048
     Dates: start: 2016
  6. GANCICLOVIR. [Suspect]
     Active Substance: GANCICLOVIR
     Route: 042
  7. TACROLIMUS. [Concomitant]
     Active Substance: TACROLIMUS
     Dosage: 1.5MG PER 12 HOURS.
     Route: 065
  8. MEDROL [Concomitant]
     Active Substance: METHYLPREDNISOLONE
     Route: 065
     Dates: start: 2016
  9. GANCICLOVIR. [Concomitant]
     Active Substance: GANCICLOVIR
     Route: 048
     Dates: start: 20160425, end: 20160509
  10. MYFORTIC [Concomitant]
     Active Substance: MYCOPHENOLATE SODIUM
     Dosage: 360MG PER 12 HOURS
     Route: 065
     Dates: start: 2016, end: 2016
  11. MEDROL [Concomitant]
     Active Substance: METHYLPREDNISOLONE
     Indication: IMMUNOSUPPRESSION
     Dosage: 8MG PER DAY
     Route: 065
     Dates: start: 2016
  12. MEDROL [Concomitant]
     Active Substance: METHYLPREDNISOLONE
     Dosage: 4MG PER 12 HOURS
     Route: 065
     Dates: start: 2016
  13. GLUTATHIONE REDUCED [Concomitant]
     Dosage: 1.8MG PER DAY
     Route: 040
     Dates: start: 2016
  14. TACROLIMUS. [Concomitant]
     Active Substance: TACROLIMUS
     Route: 065
     Dates: start: 2016
  15. GANCICLOVIR. [Suspect]
     Active Substance: GANCICLOVIR
     Indication: INTERSTITIAL LUNG DISEASE
     Route: 041
     Dates: start: 20160509, end: 20160722
  16. TACROLIMUS. [Concomitant]
     Active Substance: TACROLIMUS
     Dosage: 1.5MG PER 12 HOURS
     Route: 065
     Dates: start: 2016
  17. TACROLIMUS. [Concomitant]
     Active Substance: TACROLIMUS
     Dosage: 1.0MG PER 12 HOURS
     Route: 065
  18. COMPOUND GLYCYRRHIZIN (AMINOACETIC ACID/CYSTEINE HYDROCHLORIDE/GLYCYRR [Concomitant]
     Dosage: 60ML PER DAY
     Route: 040
     Dates: start: 2016

REACTIONS (2)
  - Interstitial lung disease [Unknown]
  - Overdose [Unknown]

NARRATIVE: CASE EVENT DATE: 2016
